FAERS Safety Report 11054426 (Version 6)
Quarter: 2015Q4

REPORT INFORMATION
  Report Type: Report from Study
  Country: US (occurrence: US)
  Receive Date: 20150422
  Receipt Date: 20151204
  Transmission Date: 20160304
  Serious: Yes (Hospitalization)
  Sender: FDA-Public Use
  Company Number: US-BIOGENIDEC-2015BI050460

PATIENT
  Age: 67 Year
  Sex: Female

DRUGS (2)
  1. PLEGRIDY [Suspect]
     Active Substance: PEGINTERFERON BETA-1A
     Indication: MULTIPLE SCLEROSIS
     Dates: start: 20150406
  2. PLEGRIDY [Suspect]
     Active Substance: PEGINTERFERON BETA-1A
     Indication: MULTIPLE SCLEROSIS
     Dates: start: 20150407, end: 20150408

REACTIONS (10)
  - Cardiac arrest [Unknown]
  - Hypertension [Recovered/Resolved]
  - Chills [Unknown]
  - Thrombosis [Recovered/Resolved]
  - Headache [Unknown]
  - Cardiac failure congestive [Recovered/Resolved]
  - Chest pain [Recovered/Resolved]
  - Electrocardiogram abnormal [Recovered/Resolved]
  - Myocardial infarction [Recovered/Resolved]
  - Vomiting [Unknown]

NARRATIVE: CASE EVENT DATE: 201504
